FAERS Safety Report 5532669-2 (Version None)
Quarter: 2007Q4

REPORT INFORMATION
  Report Type: 
  Country: None (occurrence: None)
  Receive Date: 20071203
  Receipt Date: 20071127
  Transmission Date: 20080405
  Serious: Yes (Disabling, Other)
  Sender: FDA-Public Use
  Company Number: US-MERCK-0711USA05049

PATIENT
  Age: 55 Year
  Sex: Male

DRUGS (7)
  1. DECADRON [Suspect]
     Indication: MULTIPLE MYELOMA
     Route: 048
     Dates: start: 20050801, end: 20070201
  2. THALOMID [Suspect]
     Indication: MULTIPLE MYELOMA
     Route: 048
     Dates: start: 20050801, end: 20070201
  3. ZOCOR [Concomitant]
     Route: 048
  4. ZYPREXA [Concomitant]
     Route: 065
  5. LITHIUM CARBONATE [Concomitant]
     Route: 065
  6. LITHIUM CARBONATE [Concomitant]
     Route: 065
  7. CALCIUM (UNSPECIFIED) AND VITAMIN D (UNSPECIFIED) [Concomitant]
     Route: 065

REACTIONS (2)
  - IMMUNOSUPPRESSION [None]
  - OSTEOMYELITIS CHRONIC [None]
